FAERS Safety Report 4650347-9 (Version None)
Quarter: 2005Q2

REPORT INFORMATION
  Report Type: 
  Country: None (occurrence: None)
  Receive Date: 20050428
  Receipt Date: 20050416
  Transmission Date: 20051028
  Serious: Yes (Other)
  Sender: FDA-Public Use
  Company Number: 2005061126

PATIENT
  Sex: Female

DRUGS (1)
  1. BEXTRA [Suspect]
     Indication: ILL-DEFINED DISORDER
     Dates: end: 20050201

REACTIONS (6)
  - DIFFICULTY IN WALKING [None]
  - HAEMORRHAGE [None]
  - IMPAIRED HEALING [None]
  - PRURITUS [None]
  - SKIN DISORDER [None]
  - SKIN HYPERTROPHY [None]
